FAERS Safety Report 4724377-2 (Version None)
Quarter: 2005Q3

REPORT INFORMATION
  Report Type: 
  Country: None (occurrence: None)
  Receive Date: 20050722
  Receipt Date: 20050722
  Transmission Date: 20060218
  Serious: No
  Sender: FDA-Public Use
  Company Number: None

PATIENT
  Sex: Female

DRUGS (1)
  1. REFRESH LIQUIGEL LUBRICANT EYE DROPS (MFR=ALLERGAN) [Suspect]
     Indication: DRY EYE
     Dosage: 1-2 TIMES PER DAY (EYE)

REACTIONS (3)
  - EYE DISCHARGE [None]
  - EYE PRURITUS [None]
  - PHARMACEUTICAL PRODUCT COMPLAINT [None]
